FAERS Safety Report 24809747 (Version 1)
Quarter: 2025Q1

REPORT INFORMATION
  Report Type: Other
  Country: RO (occurrence: RO)
  Receive Date: 20250106
  Receipt Date: 20250106
  Transmission Date: 20250408
  Serious: Yes (Life-Threatening, Hospitalization, Other)
  Sender: EMD SERONO INC
  Company Number: RO-Merck Healthcare KGaA-2024068701

PATIENT
  Age: 40 Year
  Sex: Male

DRUGS (3)
  1. METFORMIN [Suspect]
     Active Substance: METFORMIN HYDROCHLORIDE
     Indication: Type 2 diabetes mellitus
  2. BISOPROLOL [Suspect]
     Active Substance: BISOPROLOL
     Indication: Hypertension
  3. RILMENIDINE [Suspect]
     Active Substance: RILMENIDINE
     Indication: Hypertension

REACTIONS (6)
  - Cardiac arrest [Recovered/Resolved]
  - Renal impairment [Unknown]
  - Hyperkalaemia [Unknown]
  - Lactic acidosis [Unknown]
  - Dyskinesia [Unknown]
  - Muscular weakness [Unknown]
